FAERS Safety Report 24071952 (Version 1)
Quarter: 2024Q3

REPORT INFORMATION
  Report Type: Report from Study
  Country: IL (occurrence: IL)
  Receive Date: 20240710
  Receipt Date: 20240710
  Transmission Date: 20241017
  Serious: Yes (Other)
  Sender: STEMLINE THERAPEUTICS
  Company Number: IL-Stemline Therapeutics, Inc.-2024ST004095

PATIENT
  Age: 18 Year
  Sex: Male

DRUGS (1)
  1. ELZONRIS [Suspect]
     Active Substance: TAGRAXOFUSP-ERZS
     Indication: Acute myeloid leukaemia refractory
     Dosage: 3 DAY COURSE
     Route: 042
     Dates: start: 20240620

REACTIONS (2)
  - Blast cell count increased [Unknown]
  - White blood cell count increased [Unknown]
